FAERS Safety Report 8958554 (Version 1)
Quarter: 2012Q4

REPORT INFORMATION
  Report Type: Spontaneous
  Country: DE (occurrence: None)
  Receive Date: 20121203
  Receipt Date: 20121203
  Transmission Date: 20130627
  Serious: Yes (Hospitalization)
  Sender: FDA-Public Use
  Company Number: 2012P1065416

PATIENT
  Age: 28 Year
  Sex: Female

DRUGS (3)
  1. DARAPRIM [Suspect]
     Indication: TOXOPLASMOSIS
     Dosage: 4 tablets
     Route: 048
     Dates: start: 20120622, end: 20120622
  2. DARAPRIM [Suspect]
     Indication: TOXOPLASMOSIS
     Dosage: 1-2 Tablets
     Route: 048
     Dates: start: 20120623, end: 20120630
  3. SULFADIAZINE [Suspect]
     Route: 048
     Dates: start: 20120622, end: 20120630

REACTIONS (2)
  - Drug eruption [None]
  - Viral rash [None]
